FAERS Safety Report 5091683-4 (Version None)
Quarter: 2006Q3

REPORT INFORMATION
  Report Type: 
  Country: None (occurrence: None)
  Receive Date: 20060824
  Receipt Date: 20060815
  Transmission Date: 20061208
  Serious: Yes (Disabling)
  Sender: FDA-Public Use
  Company Number: 2006099972

PATIENT
  Age: 26 Year
  Weight: 66 kg

DRUGS (1)
  1. SULFASALAZINE [Suspect]
     Indication: RHEUMATOID ARTHRITIS
     Dosage: 1.5 GRAM, ORAL
     Route: 048
     Dates: start: 20060512, end: 20060612

REACTIONS (2)
  - DEPRESSION [None]
  - PANIC ATTACK [None]
